FAERS Safety Report 19888917 (Version 9)
Quarter: 2022Q1

REPORT INFORMATION
  Report Type: Report from Study
  Country: IN (occurrence: IN)
  Receive Date: 20210928
  Receipt Date: 20220325
  Transmission Date: 20220423
  Serious: Yes (Death, Hospitalization)
  Sender: FDA-Public Use
  Company Number: NVSC2021IN214077

PATIENT
  Age: 67 Year
  Sex: Male
  Weight: 59 kg

DRUGS (10)
  1. CAPMATINIB [Suspect]
     Active Substance: CAPMATINIB
     Indication: Non-small cell lung cancer
     Dosage: 400 MG, BID
     Route: 048
     Dates: start: 20210705, end: 20210918
  2. BUDESONIDE\FORMOTEROL FUMARATE [Concomitant]
     Active Substance: BUDESONIDE\FORMOTEROL FUMARATE
     Indication: Pleural effusion
     Dosage: UNK
     Route: 065
     Dates: start: 20210919
  3. EFCORLIN [Concomitant]
     Indication: Pleural effusion
     Dosage: UNK
     Route: 065
     Dates: start: 20210919, end: 20210930
  4. LEVOLIN [Concomitant]
     Indication: Pleural effusion
     Dosage: UNK
     Route: 065
     Dates: start: 20210919
  5. MEROPENEM [Concomitant]
     Active Substance: MEROPENEM
     Indication: Pleural effusion
     Dosage: UNK
     Route: 065
     Dates: start: 20210919, end: 20210930
  6. TARGOCID [Concomitant]
     Active Substance: TEICOPLANIN
     Indication: Pleural effusion
     Dosage: UNK
     Route: 065
     Dates: start: 20210919, end: 20210925
  7. VORICONAZOLE [Concomitant]
     Active Substance: VORICONAZOLE
     Indication: Pleural effusion
     Dosage: UNK
     Route: 065
     Dates: start: 20210919, end: 20210920
  8. AMLODIP [Concomitant]
     Indication: Pleural effusion
     Dosage: UNK
     Route: 065
     Dates: start: 20210919, end: 20210919
  9. METOCLOPRAMIDE HYDROCHLORIDE [Concomitant]
     Active Substance: METOCLOPRAMIDE HYDROCHLORIDE
     Indication: Pleural effusion
     Dosage: UNK
     Route: 065
     Dates: start: 20210919, end: 20210919
  10. TORSEMIDE [Concomitant]
     Active Substance: TORSEMIDE
     Indication: Swelling
     Dosage: 5 MG, QD
     Route: 048
     Dates: start: 20210906, end: 20210918

REACTIONS (1)
  - Sepsis [Fatal]

NARRATIVE: CASE EVENT DATE: 20210919
